FAERS Safety Report 6083126-9 (Version None)
Quarter: 2009Q1

REPORT INFORMATION
  Report Type: 
  Country: None (occurrence: None)
  Receive Date: 20090213
  Receipt Date: 20090213
  Transmission Date: 20090719
  Serious: Yes (Death, Life-Threatening, Hospitalization)
  Sender: FDA-Public Use
  Company Number: None

PATIENT
  Age: 82 Year
  Sex: Male

DRUGS (1)
  1. DIGOXIN [Suspect]

REACTIONS (5)
  - CARDIAC ARREST [None]
  - HAEMATEMESIS [None]
  - MELAENA [None]
  - NAUSEA [None]
  - VOMITING [None]
